FAERS Safety Report 16818848 (Version 2)
Quarter: 2019Q3

REPORT INFORMATION
  Report Type: Spontaneous
  Country: CN (occurrence: CN)
  Receive Date: 20190917
  Receipt Date: 20190920
  Transmission Date: 20191005
  Serious: Yes (Other)
  Sender: FDA-Public Use
  Company Number: PHHY2019CN213435

PATIENT
  Sex: Male

DRUGS (2)
  1. XALKORI [Suspect]
     Active Substance: CRIZOTINIB
     Indication: LUNG NEOPLASM MALIGNANT
     Dosage: UNK
     Route: 048
  2. CERITINIB [Suspect]
     Active Substance: CERITINIB
     Indication: LUNG NEOPLASM MALIGNANT
     Dosage: UNK
     Route: 048
     Dates: start: 20190901

REACTIONS (8)
  - Haemothorax [Not Recovered/Not Resolved]
  - Inflammation [Unknown]
  - Blood creatinine increased [Unknown]
  - Urinary incontinence [Unknown]
  - Anal incontinence [Unknown]
  - Drug resistance [Unknown]
  - Asthenia [Unknown]
  - Pleural effusion [Not Recovered/Not Resolved]
